FAERS Safety Report 18120286 (Version 1)
Quarter: 2020Q3

REPORT INFORMATION
  Report Type: Spontaneous
  Country: JP (occurrence: JP)
  Receive Date: 20200806
  Receipt Date: 20200806
  Transmission Date: 20201103
  Serious: Yes (Other)
  Sender: FDA-Public Use
  Company Number: JP-ASTRAZENECA-2020SE97232

PATIENT
  Age: 56 Year
  Sex: Female
  Weight: 61 kg

DRUGS (1)
  1. LYNPARZA [Suspect]
     Active Substance: OLAPARIB
     Indication: OVARIAN CANCER
     Dosage: DOSE UNKNOWN
     Route: 048
     Dates: start: 20190618, end: 20200214

REACTIONS (6)
  - Anaemia [Unknown]
  - Asthenia [Recovered/Resolved]
  - Nausea [Unknown]
  - Malignant neoplasm progression [Unknown]
  - Fatigue [Recovered/Resolved]
  - Hypoaesthesia [Unknown]

NARRATIVE: CASE EVENT DATE: 20190619
